FAERS Safety Report 10086749 (Version 2)
Quarter: 2014Q2

REPORT INFORMATION
  Report Type: Report from Study
  Country: IE (occurrence: IE)
  Receive Date: 20140418
  Receipt Date: 20140528
  Transmission Date: 20141212
  Serious: Yes (Other)
  Sender: FDA-Public Use
  Company Number: IE-ABBVIE-14P-229-1226772-00

PATIENT
  Sex: Male
  Weight: 66.8 kg

DRUGS (10)
  1. HUMIRA [Suspect]
     Indication: CROHN^S DISEASE
     Route: 058
     Dates: start: 20140328, end: 20140328
  2. HUMIRA [Suspect]
     Route: 058
     Dates: start: 20140411, end: 20140411
  3. HUMIRA [Suspect]
     Route: 058
  4. CALCICHEW [Concomitant]
     Indication: PRODUCT USED FOR UNKNOWN INDICATION
  5. IMURAN [Concomitant]
     Indication: PRODUCT USED FOR UNKNOWN INDICATION
     Dosage: OD
  6. PENTASA [Concomitant]
     Indication: PRODUCT USED FOR UNKNOWN INDICATION
     Dosage: BD
  7. PROTIUM [Concomitant]
     Indication: PRODUCT USED FOR UNKNOWN INDICATION
     Dosage: OD
  8. AZATHIOPRINE [Concomitant]
     Indication: CROHN^S DISEASE
     Route: 048
  9. PENTASA [Concomitant]
     Indication: CROHN^S DISEASE
     Route: 048
  10. GALFER [Concomitant]
     Indication: ANAEMIA
     Route: 048

REACTIONS (3)
  - Abdominal distension [Not Recovered/Not Resolved]
  - Abdominal tenderness [Not Recovered/Not Resolved]
  - Abdominal abscess [Not Recovered/Not Resolved]
